FAERS Safety Report 5146559-0 (Version None)
Quarter: 2006Q4

REPORT INFORMATION
  Report Type: 
  Country: None (occurrence: None)
  Receive Date: 20061107
  Receipt Date: 20061107
  Transmission Date: 20070319
  Serious: Yes (Hospitalization)
  Sender: FDA-Public Use
  Company Number: None

PATIENT
  Sex: Female
  Weight: 52.1 kg

DRUGS (2)
  1. CETUXIMAB 2MG/ML BRISTOL-MYERS SQUIBB [Suspect]
     Indication: BREAST CANCER
     Dosage: 596 9LOADING DOSE) SINGLE DOSE IV
     Route: 042
     Dates: start: 20061017
  2. CARBOPLATIN [Suspect]
     Indication: BREAST CANCER
     Dosage: 244 MG WEEKLY X 3 WEEKS IV
     Route: 042
     Dates: start: 20061017

REACTIONS (5)
  - DEHYDRATION [None]
  - FATIGUE [None]
  - NAUSEA [None]
  - PAIN [None]
  - VOMITING [None]
